FAERS Safety Report 9385093 (Version 2)
Quarter: 2013Q3

REPORT INFORMATION
  Report Type: Report from Study
  Country: AR (occurrence: AR)
  Receive Date: 20130705
  Receipt Date: 20130816
  Transmission Date: 20140515
  Serious: Yes (Other)
  Sender: FDA-Public Use
  Company Number: PHHY2013AR070221

PATIENT
  Age: 59 Year
  Sex: Female

DRUGS (2)
  1. ONBREZ [Suspect]
     Indication: CHRONIC OBSTRUCTIVE PULMONARY DISEASE
     Dosage: 150 UG, QD
     Dates: start: 201306, end: 201307
  2. DICLOFENAC [Concomitant]
     Dosage: 1 DF, BID
     Route: 048

REACTIONS (4)
  - Tibia fracture [Recovering/Resolving]
  - Fibula fracture [Recovering/Resolving]
  - Ligament sprain [Recovering/Resolving]
  - Fall [Recovering/Resolving]
